FAERS Safety Report 7121055-X (Version None)
Quarter: 2010Q4

REPORT INFORMATION
  Report Type: 
  Country: None (occurrence: None)
  Receive Date: 20101124
  Receipt Date: 20101118
  Transmission Date: 20110411
  Serious: Yes (Hospitalization, Other)
  Sender: FDA-Public Use
  Company Number: JP-B.I. PHARMACEUTICALS,INC./RIDGEFIELD-2010-BP-13025NB

PATIENT
  Age: 77 Year
  Sex: Male

DRUGS (10)
  1. MICAMLO COMBINATION [Suspect]
     Indication: HYPERTENSION
     Route: 048
     Dates: start: 20101008, end: 20101028
  2. TEGRETOL [Concomitant]
     Dates: start: 20101014
  3. UNKNOWN DRUG [Concomitant]
     Dates: start: 20101018
  4. ASPIRIN [Concomitant]
     Dates: start: 20101008
  5. LIPITOR [Concomitant]
     Dosage: 5 MG
     Dates: start: 20101001
  6. TEGRETOL [Concomitant]
     Dates: start: 20101001
  7. SELBEX [Concomitant]
     Dates: start: 20101001
  8. GASTER D [Concomitant]
     Dates: start: 20101001
  9. MICARDIS [Concomitant]
     Dosage: 40 MG
     Dates: start: 20101001, end: 20101007
  10. AMLODIN OD [Concomitant]
     Dosage: 5 MG
     Dates: start: 20101001, end: 20101007

REACTIONS (2)
  - ALTERED STATE OF CONSCIOUSNESS [None]
  - RASH [None]
